FAERS Safety Report 8308377-1 (Version None)
Quarter: 2012Q2

REPORT INFORMATION
  Report Type: 
  Country: None (occurrence: None)
  Receive Date: 20120424
  Receipt Date: 20120416
  Transmission Date: 20120825
  Serious: Yes (Hospitalization)
  Sender: FDA-Public Use
  Company Number: US-BAYER-2012-037011

PATIENT
  Sex: Female

DRUGS (1)
  1. BEYAZ [Suspect]
     Route: 048

REACTIONS (1)
  - THROMBOSIS [None]
